FAERS Safety Report 5843525-4 (Version None)
Quarter: 2008Q3

REPORT INFORMATION
  Report Type: 
  Country: None (occurrence: None)
  Receive Date: 20080813
  Receipt Date: 20080808
  Transmission Date: 20090109
  Serious: Yes (Other)
  Sender: FDA-Public Use
  Company Number: US-ASTRAZENECA-2008UW15710

PATIENT
  Sex: Male

DRUGS (2)
  1. ARIMIDEX [Suspect]
     Route: 048
  2. STEROIDS [Concomitant]

REACTIONS (1)
  - CONVULSION [None]
